FAERS Safety Report 4891143-7 (Version None)
Quarter: 2006Q1

REPORT INFORMATION
  Report Type: 
  Country: None (occurrence: None)
  Receive Date: 20060125
  Receipt Date: 20051005
  Transmission Date: 20060701
  Serious: Yes (Hospitalization)
  Sender: FDA-Public Use
  Company Number: US-MERCK-0510USA03385

PATIENT
  Age: 61 Year
  Sex: Female
  Weight: 48 kg

DRUGS (4)
  1. VIOXX [Suspect]
     Indication: ANALGESIC EFFECT
     Route: 048
     Dates: start: 20010919, end: 20040901
  2. VIOXX [Suspect]
     Route: 048
     Dates: start: 20010919, end: 20040901
  3. PREMPRO [Concomitant]
     Route: 065
  4. NORTRIPTYLINE [Concomitant]
     Route: 065

REACTIONS (1)
  - ACUTE CORONARY SYNDROME [None]
